FAERS Safety Report 21451061 (Version 1)
Quarter: 2022Q4

REPORT INFORMATION
  Report Type: Spontaneous
  Country: JP (occurrence: JP)
  Receive Date: 20221013
  Receipt Date: 20221013
  Transmission Date: 20230113
  Serious: Yes (Other)
  Sender: FDA-Public Use
  Company Number: JP-MTPC-MTPC2022-0022510

PATIENT
  Age: 5 Decade
  Sex: Male

DRUGS (3)
  1. REMICADE [Suspect]
     Active Substance: INFLIXIMAB
     Indication: Colitis ulcerative
     Dosage: 5 MILLIGRAM/KILOGRAM, QD
     Route: 041
  2. REMICADE [Suspect]
     Active Substance: INFLIXIMAB
     Dosage: 5 MILLIGRAM/KILOGRAM, QD
     Route: 041
  3. PROGRAF [Concomitant]
     Active Substance: TACROLIMUS
     Route: 065

REACTIONS (3)
  - Melaena [Recovered/Resolved]
  - Therapeutic response decreased [Recovered/Resolved]
  - Therapeutic response decreased [Recovered/Resolved]
